FAERS Safety Report 5830877-4 (Version None)
Quarter: 2008Q3

REPORT INFORMATION
  Report Type: 
  Country: None (occurrence: None)
  Receive Date: 20080801
  Receipt Date: 20080111
  Transmission Date: 20090109
  Serious: No
  Sender: FDA-Public Use
  Company Number: US-BRISTOL-MYERS SQUIBB COMPANY-14039192

PATIENT
  Age: 66 Year
  Sex: Male
  Weight: 102 kg

DRUGS (4)
  1. WARFARIN SODIUM [Suspect]
     Indication: CARDIAC DISORDER
     Route: 048
  2. LISINOPRIL [Suspect]
  3. METOPROLOL [Concomitant]
  4. ASPIRIN [Concomitant]

REACTIONS (2)
  - CONTUSION [None]
  - FEELING COLD [None]
